FAERS Safety Report 5671544-X (Version None)
Quarter: 2008Q1

REPORT INFORMATION
  Report Type: 
  Country: None (occurrence: None)
  Receive Date: 20080318
  Receipt Date: 20080317
  Transmission Date: 20080703
  Serious: Yes (Hospitalization)
  Sender: FDA-Public Use
  Company Number: JP-BOEHRINGER INGELHEIM GMBH, GERMANY-2008-BP-03487NB

PATIENT
  Age: 47 Year
  Sex: Male

DRUGS (2)
  1. MICARDIS [Suspect]
     Route: 048
     Dates: start: 20071203, end: 20080305
  2. VESICARE [Suspect]
     Route: 048

REACTIONS (1)
  - OEDEMA PERIPHERAL [None]
